FAERS Safety Report 7730021-2 (Version None)
Quarter: 2011Q3

REPORT INFORMATION
  Report Type: 
  Country: None (occurrence: None)
  Receive Date: 20110906
  Receipt Date: 20110824
  Transmission Date: 20111222
  Serious: Yes (Other)
  Sender: FDA-Public Use
  Company Number: PHHY2011CH75845

PATIENT
  Age: 68 Year
  Sex: Female
  Weight: 98 kg

DRUGS (4)
  1. RASILEZ [Suspect]
     Indication: ESSENTIAL HYPERTENSION
     Route: 048
  2. AMOXICILLIN + CLAVULANATE POTASSIUM [Concomitant]
     Indication: PYELONEPHRITIS
     Dosage: UNK UKN, UNK
     Route: 048
     Dates: start: 20110601, end: 20110601
  3. ULTRACORTEN H [Concomitant]
     Dosage: 100 MG, UNK
  4. CIPROFLOXACIN [Concomitant]
     Dosage: UNK UKN, UNK
     Route: 048
     Dates: start: 20110601, end: 20110601

REACTIONS (6)
  - SWOLLEN TONGUE [None]
  - SWELLING FACE [None]
  - DYSPNOEA [None]
  - DYSARTHRIA [None]
  - PYELONEPHRITIS [None]
  - ANGIOEDEMA [None]
